FAERS Safety Report 8262028-3 (Version None)
Quarter: 2012Q2

REPORT INFORMATION
  Report Type: 
  Country: None (occurrence: None)
  Receive Date: 20120402
  Receipt Date: 20120320
  Transmission Date: 20120825
  Serious: Yes (Death)
  Sender: FDA-Public Use
  Company Number: 7112000

PATIENT
  Age: 66 Year
  Sex: Female

DRUGS (13)
  1. METOPROLOL SUCCINATE [Concomitant]
  2. TORSEMIDE [Concomitant]
  3. SYMBICORT (BUDESONIDE W/ FORMOTEROL FUMURATE) [Concomitant]
  4. NOVALGIN GUTTAE (METAMIZOLE SODIUM) [Concomitant]
  5. KALINOR RETARD (ALL OTHER THERAPEUTIC PRODUCTS) [Concomitant]
  6. LEVOTHYROXINE SODIUM [Concomitant]
  7. CARBAZEPIN (CARBAZEPINE) CARBAZEPINE) [Concomitant]
  8. LEVOTHYROXINE SODIUM [Suspect]
     Indication: SURGERY
     Dosage: 150 MCG (150 MCG, 1 IN 1 D), ORAL
     Route: 048
  9. RAMIPRIL [Concomitant]
  10. DIGITOXIN TAB [Concomitant]
  11. SPIRIVA [Concomitant]
  12. FALITHROM (PHENPROCOUMON) [Concomitant]
  13. SPIRONOLACTONE [Concomitant]

REACTIONS (12)
  - GENERAL PHYSICAL HEALTH DETERIORATION [None]
  - LEFT VENTRICULAR FAILURE [None]
  - CARDIAC FAILURE CONGESTIVE [None]
  - SKIN TIGHTNESS [None]
  - SCRATCH [None]
  - PRODUCTIVE COUGH [None]
  - HYPOKALAEMIA [None]
  - DYSPNOEA AT REST [None]
  - TACHYARRHYTHMIA [None]
  - RASH PRURITIC [None]
  - HAEMORRHAGE [None]
  - OEDEMA PERIPHERAL [None]
